FAERS Safety Report 17520523 (Version 1)
Quarter: 2020Q1

REPORT INFORMATION
  Report Type: Spontaneous
  Country: US (occurrence: US)
  Receive Date: 20200302
  Receipt Date: 20200302
  Transmission Date: 20200409
  Serious: No
  Sender: FDA-Public Use
  Company Number: None

PATIENT
  Age: 26 Year
  Sex: Male

DRUGS (1)
  1. IRON DEXTRAN (IRON DE XTRAN (EQV-INFED) 50MG/ML INJ) [Suspect]
     Active Substance: IRON DEXTRAN
     Indication: ANAEMIA
     Route: 042
     Dates: start: 20190705, end: 20190705

REACTIONS (1)
  - Dyspnoea [None]

NARRATIVE: CASE EVENT DATE: 20190705
